FAERS Safety Report 15550027 (Version 1)
Quarter: 2018Q4

REPORT INFORMATION
  Report Type: Spontaneous
  Country: TR (occurrence: TR)
  Receive Date: 20181025
  Receipt Date: 20181025
  Transmission Date: 20190205
  Serious: Yes (Hospitalization, Other)
  Sender: FDA-Public Use
  Company Number: TR-UNICHEM PHARMACEUTICALS (USA) INC-UCM201810-000275

PATIENT
  Age: 68 Year
  Sex: Female

DRUGS (4)
  1. MELOXICAM. [Suspect]
     Active Substance: MELOXICAM
     Indication: BACK PAIN
  2. ETODOLAC. [Suspect]
     Active Substance: ETODOLAC
     Indication: BACK PAIN
  3. TENOXICAM L [Suspect]
     Active Substance: TENOXICAM
     Indication: BACK PAIN
  4. RANITIDINE. [Concomitant]
     Active Substance: RANITIDINE
     Route: 042

REACTIONS (3)
  - Non-cardiogenic pulmonary oedema [Unknown]
  - Anaphylactic reaction [Unknown]
  - Acute respiratory distress syndrome [Unknown]
